APPROVED DRUG PRODUCT: FEBUXOSTAT
Active Ingredient: FEBUXOSTAT
Strength: 40MG
Dosage Form/Route: TABLET;ORAL
Application: A205385 | Product #001
Applicant: PHARMOBEDIENT CONSULTING LLC
Approved: Jul 1, 2019 | RLD: No | RS: No | Type: DISCN